FAERS Safety Report 8334327-8 (Version None)
Quarter: 2012Q2

REPORT INFORMATION
  Report Type: 
  Country: None (occurrence: None)
  Receive Date: 20120503
  Receipt Date: 20120426
  Transmission Date: 20120825
  Serious: Yes (Death)
  Sender: FDA-Public Use
  Company Number: JP-PFIZER INC-2012106639

PATIENT
  Age: 59 Year
  Sex: Male

DRUGS (3)
  1. ESTRACYT [Suspect]
     Indication: PROSTATE CANCER
     Dosage: 313.4 MG/DAY
     Route: 048
     Dates: start: 20110105, end: 20110318
  2. URSO 250 [Concomitant]
     Dosage: UNK
     Dates: start: 20090310, end: 20110309
  3. BUP-4 [Concomitant]
     Dosage: UNK
     Dates: start: 20090707, end: 20110309

REACTIONS (1)
  - DEATH [None]
